FAERS Safety Report 5308216-7 (Version None)
Quarter: 2007Q2

REPORT INFORMATION
  Report Type: 
  Country: None (occurrence: None)
  Receive Date: 20070426
  Receipt Date: 20070413
  Transmission Date: 20071010
  Serious: Yes (Other)
  Sender: FDA-Public Use
  Company Number: US-AMGEN-KDL197845

PATIENT
  Sex: Female
  Weight: 90.9 kg

DRUGS (9)
  1. EPOGEN [Suspect]
     Indication: DIALYSIS
     Route: 065
     Dates: start: 19940101
  2. ALLEGRA [Concomitant]
  3. PHOSLO [Concomitant]
  4. ALEVE [Concomitant]
  5. LOTREL [Concomitant]
  6. HUMULINE NPH [Concomitant]
     Route: 058
  7. ASPIRIN [Concomitant]
  8. TRICOR [Concomitant]
  9. CIPRO [Concomitant]
     Dates: start: 20061004, end: 20061011

REACTIONS (5)
  - HAEMOLYSIS [None]
  - HEPATOMEGALY [None]
  - NORMOCHROMIC NORMOCYTIC ANAEMIA [None]
  - SPLENOMEGALY [None]
  - THERAPEUTIC RESPONSE DECREASED [None]
